FAERS Safety Report 10256129 (Version 2)
Quarter: 2014Q2

REPORT INFORMATION
  Report Type: Spontaneous
  Country: FR (occurrence: FR)
  Receive Date: 20140624
  Receipt Date: 20140624
  Transmission Date: 20141212
  Serious: Yes (Hospitalization)
  Sender: FDA-Public Use
  Company Number: FR-PFIZER INC-2013124374

PATIENT
  Age: 75 Year
  Sex: Male

DRUGS (4)
  1. ANSATIPINE [Suspect]
     Indication: MYCOBACTERIUM AVIUM COMPLEX INFECTION
     Dosage: 150 MG (DOSE UNKNOWN)
     Route: 048
     Dates: start: 20120901, end: 20130409
  2. MABTHERA [Concomitant]
     Dosage: UNK
     Dates: start: 20120901
  3. ZECLAR [Concomitant]
     Dosage: UNK
     Dates: start: 20120901
  4. DEXAMBUTOL [Concomitant]
     Dosage: UNK
     Dates: start: 20120901

REACTIONS (1)
  - Optic neuritis [Recovering/Resolving]
